FAERS Safety Report 10795473 (Version 1)
Quarter: 2015Q1

REPORT INFORMATION
  Report Type: Spontaneous
  Country: US (occurrence: US)
  Receive Date: 20150215
  Receipt Date: 20150215
  Transmission Date: 20150721
  Serious: Yes (Death, Hospitalization, Other)
  Sender: FDA-Public Use
  Company Number: US-ACTAVIS-2015-01804

PATIENT
  Age: 42 Year
  Sex: Female

DRUGS (6)
  1. PREDNISONE (WATSON LABORATORIES) [Suspect]
     Active Substance: PREDNISONE
     Indication: OVERDOSE
     Dosage: UNK
     Route: 048
  2. CLONAZEPAM. [Concomitant]
     Active Substance: CLONAZEPAM
     Indication: PRODUCT USED FOR UNKNOWN INDICATION
     Dosage: UNK
     Route: 065
  3. DILTIAZEM EXTENDED RELEASE (UNKNOWN MANUFACTURER) [Suspect]
     Active Substance: DILTIAZEM HYDROCHLORIDE
     Indication: OVERDOSE
     Dosage: UNK
     Route: 048
  4. ZOLPIDEM [Concomitant]
     Active Substance: ZOLPIDEM\ZOLPIDEM TARTRATE
     Indication: PRODUCT USED FOR UNKNOWN INDICATION
     Dosage: UNK
     Route: 065
  5. BUPROPION HYDROCHLORIDE (ACTAVIS LABORATORIES FL) [Suspect]
     Active Substance: BUPROPION HYDROCHLORIDE
     Indication: OVERDOSE
     Dosage: UNK
     Route: 048
  6. CITALOPRAM [Concomitant]
     Active Substance: CITALOPRAM HYDROBROMIDE
     Indication: PRODUCT USED FOR UNKNOWN INDICATION
     Dosage: UNK
     Route: 065

REACTIONS (10)
  - Hypotension [Not Recovered/Not Resolved]
  - Tachycardia [Unknown]
  - Blood bicarbonate decreased [Unknown]
  - Cardiac arrest [Fatal]
  - Mydriasis [Unknown]
  - Overdose [Fatal]
  - Generalised tonic-clonic seizure [Unknown]
  - Electrocardiogram QT prolonged [Unknown]
  - Lethargy [Not Recovered/Not Resolved]
  - Blood glucose increased [Unknown]
